FAERS Safety Report 6472589-2 (Version None)
Quarter: 2009Q4

REPORT INFORMATION
  Report Type: 
  Country: None (occurrence: None)
  Receive Date: 20091125
  Receipt Date: 20091113
  Transmission Date: 20100525
  Serious: Yes (Other)
  Sender: FDA-Public Use
  Company Number: 091104-0001155

PATIENT
  Age: 54 Year
  Sex: Female

DRUGS (3)
  1. COSMEGEN [Suspect]
     Indication: RHABDOMYOSARCOMA
     Dosage: ; IV
     Route: 042
     Dates: start: 20080703
  2. ONCOVIN [Suspect]
     Indication: RHABDOMYOSARCOMA
     Dates: start: 20080703
  3. CYCLOPHOSPHAMIDE [Suspect]
     Indication: RHABDOMYOSARCOMA
     Dates: start: 20080703

REACTIONS (4)
  - ABDOMINAL INFECTION [None]
  - DIALYSIS [None]
  - RENAL FAILURE ACUTE [None]
  - TUMOUR LYSIS SYNDROME [None]
